FAERS Safety Report 19857744 (Version 1)
Quarter: 2021Q3

REPORT INFORMATION
  Report Type: Spontaneous
  Country: IT (occurrence: IT)
  Receive Date: 20210921
  Receipt Date: 20210921
  Transmission Date: 20211014
  Serious: Yes (Other)
  Sender: FDA-Public Use
  Company Number: IT-SUN PHARMACEUTICAL INDUSTRIES LTD-2021RR-311670

PATIENT
  Sex: Male

DRUGS (7)
  1. VENLAFAXINE [Suspect]
     Active Substance: VENLAFAXINE HYDROCHLORIDE
     Indication: NEURALGIA
     Dosage: UNK
     Route: 065
  2. AMITRIPTYLINE [Suspect]
     Active Substance: AMITRIPTYLINE
     Indication: NEURALGIA
     Route: 065
  3. CARBAMAZEPINE. [Suspect]
     Active Substance: CARBAMAZEPINE
     Indication: NEURALGIA
     Dosage: UNK
     Route: 065
  4. BACLOFEN. [Suspect]
     Active Substance: BACLOFEN
     Indication: NEUROENDOCRINE TUMOUR
     Dosage: 25 MILLIGRAM, DAILY
     Route: 065
  5. PREGABALIN. [Suspect]
     Active Substance: PREGABALIN
     Indication: NEURALGIA
     Dosage: UNK
     Route: 065
  6. DULOXETINE. [Suspect]
     Active Substance: DULOXETINE
     Indication: NEURALGIA
     Route: 065
  7. GABAPENTIN. [Suspect]
     Active Substance: GABAPENTIN
     Indication: NEURALGIA
     Dosage: UNK
     Route: 065

REACTIONS (3)
  - Adverse drug reaction [Unknown]
  - Therapeutic product effect incomplete [Unknown]
  - Hypotension [Unknown]
